FAERS Safety Report 12647295 (Version 1)
Quarter: 2016Q3

REPORT INFORMATION
  Report Type: Other
  Country: CN (occurrence: CN)
  Receive Date: 20160812
  Receipt Date: 20160812
  Transmission Date: 20161109
  Serious: Yes (Hospitalization)
  Sender: FDA-Public Use
  Company Number: CN-LUPIN PHARMACEUTICALS INC.-2016-03522

PATIENT
  Age: 75 Year
  Sex: Female

DRUGS (19)
  1. MINOCYCLINE [Suspect]
     Active Substance: MINOCYCLINE\MINOCYCLINE HYDROCHLORIDE
     Indication: DYSPNOEA
  2. MOXIFLOXACIN. [Suspect]
     Active Substance: MOXIFLOXACIN
     Indication: STEVENS-JOHNSON SYNDROME
     Route: 042
  3. METHYLPREDNISOLONE SODIUM SUCCINATE. [Concomitant]
     Active Substance: METHYLPREDNISOLONE SODIUM SUCCINATE
     Indication: DYSPNOEA
  4. BUDESONIDE. [Concomitant]
     Active Substance: BUDESONIDE
     Indication: ASTHMA
     Route: 065
  5. VORICONAZOLE. [Suspect]
     Active Substance: VORICONAZOLE
     Indication: DYSPNOEA
  6. DOXOFYLLINE [Concomitant]
     Active Substance: DOXOFYLLINE
     Indication: ASTHMA
     Route: 065
  7. SALBUTEROL SULPHATE [Concomitant]
     Indication: ASTHMA
     Route: 065
  8. CEFOPERAZONE/SULBACTAM [Suspect]
     Active Substance: CEFOPERAZONE\SULBACTAM
     Indication: DYSPNOEA
  9. ETIMICIN [Suspect]
     Active Substance: ETIMICIN SULFATE
     Indication: DYSPNOEA
  10. PROCATEROL [Concomitant]
     Active Substance: PROCATEROL HYDROCHLORIDE
     Indication: ASTHMA
     Route: 065
  11. CEFOPERAZONE/SULBACTAM [Suspect]
     Active Substance: CEFOPERAZONE\SULBACTAM
     Indication: COUGH
     Route: 065
  12. ETIMICIN [Suspect]
     Active Substance: ETIMICIN SULFATE
     Indication: COUGH
     Route: 065
  13. IPRATROPIUM BROMIDE. [Concomitant]
     Active Substance: IPRATROPIUM BROMIDE
     Indication: ASTHMA
     Route: 065
  14. FLUCONAZOLE. [Concomitant]
     Active Substance: FLUCONAZOLE
     Indication: ORAL FUNGAL INFECTION
     Route: 065
  15. VORICONAZOLE. [Suspect]
     Active Substance: VORICONAZOLE
     Indication: ASPERGILLUS INFECTION
     Route: 065
  16. SALMETEROL/FLUTICASONE PROPIONATE [Concomitant]
     Indication: ASTHMA
     Route: 065
  17. MINOCYCLINE [Suspect]
     Active Substance: MINOCYCLINE\MINOCYCLINE HYDROCHLORIDE
     Indication: COUGH
     Route: 065
  18. SALMETEROL/FLUTICASONE PROPIONATE [Concomitant]
     Dosage: 50/250 AMICRO GRAM, 1 PUFF
     Route: 065
  19. METHYLPREDNISOLONE SODIUM SUCCINATE. [Concomitant]
     Active Substance: METHYLPREDNISOLONE SODIUM SUCCINATE
     Indication: COUGH
     Route: 065

REACTIONS (2)
  - Bronchopulmonary aspergillosis allergic [Recovered/Resolved]
  - Stevens-Johnson syndrome [Recovered/Resolved]
